FAERS Safety Report 13439893 (Version 1)
Quarter: 2017Q2

REPORT INFORMATION
  Report Type: Spontaneous
  Country: US (occurrence: US)
  Receive Date: 20170413
  Receipt Date: 20170413
  Transmission Date: 20170830
  Serious: Yes (Death)
  Sender: FDA-Public Use
  Company Number: US-PFIZER INC-2017162135

PATIENT
  Age: 57 Year

DRUGS (1)
  1. GEODON [Suspect]
     Active Substance: ZIPRASIDONE HYDROCHLORIDE\ZIPRASIDONE MESYLATE
     Indication: HALLUCINATION, AUDITORY
     Dosage: UNK

REACTIONS (2)
  - Product use in unapproved indication [Unknown]
  - Pneumonia aspiration [Fatal]
